FAERS Safety Report 13895257 (Version 1)
Quarter: 2017Q3

REPORT INFORMATION
  Report Type: Spontaneous
  Country: US (occurrence: US)
  Receive Date: 20170818
  Receipt Date: 20170818
  Transmission Date: 20171127
  Serious: No
  Sender: FDA-Public Use
  Company Number: None

PATIENT
  Age: 49 Year
  Sex: Male

DRUGS (1)
  1. OMNIPAQUE [Suspect]
     Active Substance: IOHEXOL
     Route: 042

REACTIONS (4)
  - Throat irritation [None]
  - Cardio-respiratory arrest [None]
  - Dyspnoea [None]
  - Emotional distress [None]

NARRATIVE: CASE EVENT DATE: 20170713
